FAERS Safety Report 10090134 (Version 1)
Quarter: 2014Q2

REPORT INFORMATION
  Report Type: Spontaneous
  Country: US (occurrence: US)
  Receive Date: 20140421
  Receipt Date: 20140421
  Transmission Date: 20141212
  Serious: Yes (Death)
  Sender: FDA-Public Use
  Company Number: US-MALLINCKRODT-T201401914

PATIENT
  Age: 64 Year
  Sex: Female

DRUGS (2)
  1. METHADOSE [Suspect]
     Indication: CANCER PAIN
     Dosage: 100 MG, Q8H PRN
     Route: 048
  2. ROXICODONE [Suspect]
     Indication: CANCER PAIN
     Dosage: 30 MG, Q3H PRN
     Route: 048

REACTIONS (1)
  - Disease progression [Fatal]
